FAERS Safety Report 4609522-1 (Version None)
Quarter: 2005Q1

REPORT INFORMATION
  Report Type: 
  Country: None (occurrence: None)
  Receive Date: 20050316
  Receipt Date: 20050304
  Transmission Date: 20050727
  Serious: Yes (Life-Threatening)
  Sender: FDA-Public Use
  Company Number: CA-JNJFOC-20050301687

PATIENT
  Sex: Male
  Weight: 81 kg

DRUGS (12)
  1. REMICADE [Suspect]
     Indication: RHEUMATOID ARTHRITIS
     Route: 042
  2. NOVASEN [Concomitant]
     Dosage: 10 GR + 2 TABS TWICE DAILY
  3. ARTHROTEC [Concomitant]
  4. ARTHROTEC [Concomitant]
     Dosage: 75/200 - 1 TAB TWICE DAILY X 30 YEARS
  5. PREDNISONE [Concomitant]
  6. METHOTREXATE [Concomitant]
  7. FOLIC ACID [Concomitant]
     Dosage: X 3 DAYS PRE-MED
  8. ENBREL [Concomitant]
  9. ARAVA [Concomitant]
     Dosage: 100 MG DAILY X 3 DAYS THEN 20 MG DAILY SINCE MARCH 2003.
  10. CALCIUM GLUCONATE [Concomitant]
  11. VITAMIN D [Concomitant]
  12. DICLOFENAC/MISOPROSTOL [Concomitant]

REACTIONS (1)
  - B-CELL LYMPHOMA [None]
